FAERS Safety Report 23104502 (Version 1)
Quarter: 2023Q4

REPORT INFORMATION
  Report Type: Spontaneous
  Country: US (occurrence: None)
  Receive Date: 20231023
  Receipt Date: 20231023
  Transmission Date: 20240110
  Serious: Yes (Hospitalization)
  Sender: FDA-Public Use
  Company Number: None

PATIENT
  Age: 68 Year
  Sex: Male
  Weight: 93 kg

DRUGS (2)
  1. APIXABAN [Suspect]
     Active Substance: APIXABAN
     Dosage: FREQUENCY : DAILY;?
     Route: 048
     Dates: start: 20220317
  2. CLOPIDOGREL BISULFATE [Suspect]
     Active Substance: CLOPIDOGREL BISULFATE
     Dates: start: 20220317

REACTIONS (7)
  - Therapy interrupted [None]
  - Tooth extraction [None]
  - Dialysis [None]
  - Post procedural haemorrhage [None]
  - Anaemia [None]
  - Platelet count decreased [None]
  - Red blood cell transfusion [None]

NARRATIVE: CASE EVENT DATE: 20221020
